FAERS Safety Report 18032590 (Version 3)
Quarter: 2020Q4

REPORT INFORMATION
  Report Type: Report from Study
  Country: None (occurrence: US)
  Receive Date: 20200716
  Receipt Date: 20201028
  Transmission Date: 20210113
  Serious: No
  Sender: FDA-Public Use
  Company Number: US-BIOVITRUM-2020US3730

PATIENT
  Age: 53 Year
  Sex: Female

DRUGS (2)
  1. KINERET [Suspect]
     Active Substance: ANAKINRA
     Indication: STILL^S DISEASE
     Route: 058
     Dates: start: 20190510
  2. KINERET [Suspect]
     Active Substance: ANAKINRA
     Route: 058
     Dates: start: 20200315

REACTIONS (11)
  - Memory impairment [Unknown]
  - Alopecia [Unknown]
  - Off label use [Not Recovered/Not Resolved]
  - Balance disorder [Unknown]
  - Autoscopy [Unknown]
  - Cardiac ventricular scarring [Unknown]
  - Glucose tolerance impaired [Unknown]
  - White blood cell count increased [Unknown]
  - Product dose omission issue [Unknown]
  - Bacterial infection [Unknown]
  - Influenza like illness [Unknown]

NARRATIVE: CASE EVENT DATE: 20200315
